FAERS Safety Report 4899887-8 (Version None)
Quarter: 2006Q1

REPORT INFORMATION
  Report Type: 
  Country: None (occurrence: None)
  Receive Date: 20060118
  Receipt Date: 20051021
  Transmission Date: 20060701
  Serious: No
  Sender: FDA-Public Use
  Company Number: 2005002064

PATIENT
  Age: 74 Year
  Sex: Male

DRUGS (6)
  1. TARCEVA [Suspect]
     Indication: NON-SMALL CELL LUNG CANCER
     Dosage: 150 MG (QD), ORAL
     Route: 048
     Dates: start: 20051018
  2. LIPITOR [Concomitant]
  3. ZANTAC [Concomitant]
  4. CALCIUM GLUCONATE [Concomitant]
  5. ZOLOFT [Concomitant]
  6. WARFARIN SODIUM [Concomitant]

REACTIONS (2)
  - DYSPNOEA EXACERBATED [None]
  - HAEMOPTYSIS [None]
